FAERS Safety Report 4507901-4 (Version None)
Quarter: 2004Q4

REPORT INFORMATION
  Report Type: 
  Country: None (occurrence: None)
  Receive Date: 20041123
  Receipt Date: 20040927
  Transmission Date: 20050328
  Serious: Yes (Hospitalization)
  Sender: FDA-Public Use
  Company Number: US-ROCHE-381484

PATIENT
  Age: 61 Year
  Sex: Male
  Weight: 52.6 kg

DRUGS (12)
  1. PEG-INTERFERON ALFA 2A (RO 25-8310) [Suspect]
     Route: 058
     Dates: start: 20040803
  2. RIBAVIRIN [Suspect]
     Dosage: 2 TABLETS TAKEN TWICE A DAY (BID).
     Route: 048
     Dates: start: 20040803, end: 20040921
  3. RIBAVIRIN [Suspect]
     Route: 048
     Dates: start: 20040926
  4. NOVOLIN 70/30 [Suspect]
     Indication: DRUG USE FOR UNKNOWN INDICATION
     Dosage: 34 UNITS TAKEN A.M. AND 20 UNITS P.M.
     Route: 065
     Dates: start: 20020615
  5. NOVOLIN R [Suspect]
     Indication: DRUG USE FOR UNKNOWN INDICATION
     Dosage: SLIDING SCALE DOSE REPORTED.
     Route: 065
     Dates: start: 20020615
  6. LISINOPRIL [Concomitant]
     Dates: start: 20020615
  7. MARIJUANA [Concomitant]
     Dates: start: 19890615
  8. AMITRIPTYLINE HCL [Concomitant]
     Route: 048
     Dates: start: 20040716
  9. GLUCERNA [Concomitant]
     Dosage: 2 CANS TAKEN DAILY. FORMULATION: LIQUID.
     Dates: start: 20040801
  10. EFFEXOR [Concomitant]
     Dates: start: 20040817
  11. COMPAZINE [Concomitant]
     Route: 048
     Dates: start: 20040831
  12. ASPIRIN [Concomitant]
     Dosage: THE PATIENT STOPPED TAKING THIS MEDICATION, ONE WEEK AGO.
     Dates: end: 20041004

REACTIONS (14)
  - ACUTE CORONARY SYNDROME [None]
  - ANAEMIA [None]
  - ARRHYTHMIA [None]
  - CLAVICLE FRACTURE [None]
  - CONVULSION [None]
  - DEHYDRATION [None]
  - DIABETIC AUTONOMIC NEUROPATHY [None]
  - DIZZINESS [None]
  - FALL [None]
  - HYPERALBUMINAEMIA [None]
  - HYPOGLYCAEMIA [None]
  - NEUTROPENIA [None]
  - PLATELET COUNT DECREASED [None]
  - SYNCOPE [None]
